FAERS Safety Report 13135574 (Version 6)
Quarter: 2017Q3

REPORT INFORMATION
  Report Type: Spontaneous
  Country: KR (occurrence: KR)
  Receive Date: 20170120
  Receipt Date: 20170801
  Transmission Date: 20171127
  Serious: No
  Sender: FDA-Public Use
  Company Number: KR-009507513-1701KOR009318

PATIENT
  Age: 58 Year
  Sex: Female
  Weight: 64 kg

DRUGS (27)
  1. EMEND (FOSAPREPITANT DIMEGLUMINE) [Suspect]
     Active Substance: FOSAPREPITANT DIMEGLUMINE
     Dosage: 150 MG, ONCE
     Route: 042
     Dates: start: 20161102, end: 20161102
  2. DEXAMETHASONE DAEWON [Concomitant]
     Dosage: 2.5 MG, ONCE
     Route: 042
     Dates: start: 20160928, end: 20160928
  3. LASIX [Concomitant]
     Active Substance: FUROSEMIDE
     Dosage: STRENGTH 20MG/ 2ML, 20 MG, ONCE
     Route: 042
     Dates: start: 20161102, end: 20161102
  4. D-MANNITOL DAIHAN [Concomitant]
     Dosage: STRENGTH 15%/ 100ML, 100 ML, ONCE
     Route: 042
     Dates: start: 20161010, end: 20161010
  5. EMEND (FOSAPREPITANT DIMEGLUMINE) [Suspect]
     Active Substance: FOSAPREPITANT DIMEGLUMINE
     Indication: PROPHYLAXIS OF NAUSEA AND VOMITING
     Dosage: 150 MG, ONCE
     Route: 042
     Dates: start: 20160919, end: 20160919
  6. DEXAMETHASONE DAEWON [Concomitant]
     Dosage: 10 MG, ONCE
     Route: 042
     Dates: start: 20161102, end: 20161102
  7. LASIX [Concomitant]
     Active Substance: FUROSEMIDE
     Indication: NEPHROPROTECTIVE THERAPY
     Dosage: STRENGTH 20MG/ 2ML, 20 MG, ONCE
     Route: 042
     Dates: start: 20160919, end: 20160919
  8. IRCODON [Concomitant]
     Active Substance: OXYCODONE HYDROCHLORIDE
     Indication: CANCER PAIN
     Dosage: 1 TABLET, TID
     Route: 048
     Dates: start: 20160907
  9. TS-1 [Concomitant]
     Active Substance: GIMERACIL\OTERACIL\TEGAFUR
     Indication: GASTRIC CANCER
     Dosage: 2 CAPSULES, BID
     Route: 048
     Dates: start: 20160919
  10. D-MANNITOL DAIHAN [Concomitant]
     Dosage: STRENGTH 15%/ 100ML, 100 ML, ONCE
     Route: 042
     Dates: start: 20161102, end: 20161102
  11. DUPHALAC [Concomitant]
     Active Substance: LACTULOSE
     Indication: CONSTIPATION PROPHYLAXIS
     Dosage: 15 ML, BID
     Route: 048
     Dates: start: 20160907, end: 20160914
  12. BESZYME [Concomitant]
     Indication: PROPHYLAXIS
     Dosage: 1 TABLET, TID
     Route: 048
     Dates: start: 20160912
  13. TS-1 [Concomitant]
     Active Substance: GIMERACIL\OTERACIL\TEGAFUR
     Indication: GASTRIC CANCER
     Dosage: 1 CAPSULE, BID
     Route: 048
     Dates: start: 20160919
  14. EMEND (FOSAPREPITANT DIMEGLUMINE) [Suspect]
     Active Substance: FOSAPREPITANT DIMEGLUMINE
     Dosage: 150 MG, ONCE
     Route: 042
     Dates: start: 20161010, end: 20161010
  15. LASIX [Concomitant]
     Active Substance: FUROSEMIDE
     Dosage: STRENGTH 20MG/ 2ML, 20 MG, ONCE
     Route: 042
     Dates: start: 20161010, end: 20161010
  16. D-MANNITOL DAIHAN [Concomitant]
     Indication: NEPHROPROTECTIVE THERAPY
     Dosage: STRENGTH 15%/ 100ML, 100 ML, ONCE
     Route: 042
     Dates: start: 20160919, end: 20160919
  17. ULCERLMIN [Concomitant]
     Active Substance: SUCRALFATE
     Indication: PROPHYLAXIS
     Dosage: STRENGTH 1G/15ML, 15 ML, TID
     Route: 048
     Dates: start: 20160912
  18. MUCOSTA [Concomitant]
     Active Substance: REBAMIPIDE
     Indication: PROPHYLAXIS
     Dosage: 1 TABLET (100) MG, TID
     Route: 048
     Dates: start: 20160912
  19. CISPAT IN [Concomitant]
     Indication: GASTRIC CANCER
     Dosage: STRENGTH 50MG/ 100ML, 100 MG, ONCE
     Route: 042
     Dates: start: 20160919, end: 20160919
  20. CISPAT IN [Concomitant]
     Dosage: STRENGTH 50MG/ 100ML, 98.4 MG, ONCE
     Route: 042
     Dates: start: 20161010, end: 20161010
  21. CISPAT IN [Concomitant]
     Dosage: STRENGTH 50MG/ 100ML, 98.4 MG, ONCE
     Route: 042
     Dates: start: 20161102, end: 20161102
  22. TARGIN [Concomitant]
     Active Substance: NALOXONE HYDROCHLORIDE\OXYCODONE HYDROCHLORIDE
     Indication: CANCER PAIN
     Dosage: 1 TABLET, BID
     Route: 048
     Dates: start: 20160912
  23. DEXAMETHASONE DAEWON [Concomitant]
     Dosage: 10 MG, ONCE
     Route: 042
     Dates: start: 20161010, end: 20161010
  24. POLYBUTINE [Concomitant]
     Indication: PROPHYLAXIS
     Dosage: 1 TABLET (100 MG), TID
     Route: 048
     Dates: start: 20160912
  25. DEXAMETHASONE DAEWON [Concomitant]
     Indication: PROPHYLAXIS OF NAUSEA AND VOMITING
     Dosage: 10 MG, ONCE
     Route: 042
     Dates: start: 20160919, end: 20160919
  26. ALOXI [Concomitant]
     Active Substance: PALONOSETRON HYDROCHLORIDE
     Indication: PROPHYLAXIS OF NAUSEA AND VOMITING
     Dosage: 0.25, ONCE
     Route: 042
     Dates: start: 20160919, end: 20160919
  27. MEGACE [Concomitant]
     Active Substance: MEGESTROL ACETATE
     Indication: PROPHYLAXIS
     Dosage: 10 ML, BID
     Route: 048
     Dates: start: 20160912

REACTIONS (5)
  - Insomnia [Recovered/Resolved]
  - Drug effect incomplete [Unknown]
  - Dizziness [Recovered/Resolved]
  - Nausea [Recovered/Resolved]
  - Fatigue [Recovered/Resolved]

NARRATIVE: CASE EVENT DATE: 20160919
